FAERS Safety Report 8336479 (Version 3)
Quarter: 2013Q4

REPORT INFORMATION
  Report Type: Spontaneous
  Country: US (occurrence: US)
  Receive Date: 20120113
  Receipt Date: 20131230
  Transmission Date: 20140711
  Serious: Yes (Hospitalization, Other)
  Sender: FDA-Public Use
  Company Number: US-BAYER-2012-002933

PATIENT
  Age: 31 Year
  Sex: Female
  Weight: 104.31 kg

DRUGS (11)
  1. YASMIN [Suspect]
     Indication: CONTRACEPTION
     Dosage: UNK
     Route: 048
     Dates: start: 2004, end: 2008
  2. YASMIN [Suspect]
     Indication: ACNE
  3. YASMIN [Suspect]
     Indication: POLYCYSTIC OVARIES
  4. OCELLA [Suspect]
     Indication: CONTRACEPTION
     Dosage: UNK
     Dates: start: 2008, end: 2012
  5. OCELLA [Suspect]
     Indication: ACNE
  6. OCELLA [Suspect]
     Indication: POLYCYSTIC OVARIES
  7. ZOLOFT [Concomitant]
     Indication: DEPRESSION
     Dosage: UNK
     Route: 048
     Dates: start: 2004, end: 2009
  8. METFORMIN [Concomitant]
     Indication: POLYCYSTIC OVARIES
     Dosage: 850 MG, UNK
     Route: 048
     Dates: start: 2004
  9. NEXIUM [Concomitant]
     Dosage: UNK
     Route: 048
     Dates: start: 20060511
  10. WELLBUTRIN XL [Concomitant]
     Dosage: 150 MG, UNK
     Route: 048
     Dates: start: 20060313
  11. CLOMID [Concomitant]

REACTIONS (3)
  - Cholelithiasis [None]
  - Pain [None]
  - Cholecystitis chronic [None]
